FAERS Safety Report 4664584-0 (Version None)
Quarter: 2005Q2

REPORT INFORMATION
  Report Type: 
  Country: None (occurrence: None)
  Receive Date: 20050518
  Receipt Date: 20050425
  Transmission Date: 20051028
  Serious: Yes (Hospitalization, Other)
  Sender: FDA-Public Use
  Company Number: IN-GLAXOSMITHKLINE-B0379902A

PATIENT
  Age: 32 Year
  Sex: Female
  Weight: 110 kg

DRUGS (10)
  1. SUPACEF [Suspect]
     Dosage: 1.5G UNKNOWN
     Route: 042
  2. BUPIVACAINE [Concomitant]
     Route: 065
  3. INSULIN [Concomitant]
     Route: 065
  4. METHYLDOPA [Concomitant]
     Indication: HYPERTENSION
     Dosage: 125MG THREE TIMES PER DAY
     Route: 065
  5. THYROXINE SODIUM [Concomitant]
     Indication: HYPOTHYROIDISM
     Dosage: .1MG PER DAY
     Route: 065
  6. DERIPHYLLINE [Concomitant]
     Indication: ILL-DEFINED DISORDER
     Route: 065
  7. GLYCOPYRROLATE [Concomitant]
     Dosage: .2MG UNKNOWN
     Route: 030
  8. RANITIDINE [Concomitant]
     Dosage: 50MG UNKNOWN
     Route: 042
  9. METOCLOPRAMIDE [Concomitant]
     Dosage: 10MG UNKNOWN
     Route: 042
  10. RINGER'S [Concomitant]
     Dosage: 750ML UNKNOWN
     Route: 065

REACTIONS (10)
  - ANAPHYLACTIC REACTION [None]
  - BLOOD PRESSURE IMMEASURABLE [None]
  - BRONCHOSPASM [None]
  - CARDIAC ARREST [None]
  - CHEST DISCOMFORT [None]
  - CYANOSIS [None]
  - DYSPNOEA [None]
  - LOSS OF CONSCIOUSNESS [None]
  - PULSE ABSENT [None]
  - RESPIRATORY ARREST [None]
